FAERS Safety Report 9031691 (Version 1)
Quarter: 2013Q1

REPORT INFORMATION
  Report Type: Spontaneous
  Country: US (occurrence: US)
  Receive Date: 20130124
  Receipt Date: 20130124
  Transmission Date: 20140127
  Serious: Yes (Other)
  Sender: FDA-Public Use
  Company Number: US-PFIZER INC-2013018355

PATIENT
  Age: 16 Year
  Sex: Female

DRUGS (3)
  1. METHOTREXATE SODIUM [Suspect]
     Indication: ACUTE LYMPHOCYTIC LEUKAEMIA RECURRENT
     Dosage: 3 G/M2, UNK
     Route: 042
  2. METHOTREXATE SODIUM [Suspect]
     Dosage: UNK
     Route: 039
  3. CYTARABINE [Suspect]
     Indication: ACUTE LYMPHOCYTIC LEUKAEMIA RECURRENT
     Dosage: UNK
     Route: 037

REACTIONS (2)
  - Leukoencephalopathy [Recovering/Resolving]
  - Mucosal inflammation [Unknown]
